FAERS Safety Report 6233106-5 (Version None)
Quarter: 2009Q2

REPORT INFORMATION
  Report Type: 
  Country: None (occurrence: None)
  Receive Date: 20090617
  Receipt Date: 20090402
  Transmission Date: 20091009
  Serious: Yes (Disabling)
  Sender: FDA-Public Use
  Company Number: TR-ELI_LILLY_AND_COMPANY-TR200906002955

PATIENT
  Age: 80 Year
  Sex: Female

DRUGS (2)
  1. HUMULIN N [Suspect]
     Indication: DIABETES MELLITUS
     Dosage: 10 U, 3/D
     Route: 058
  2. MINOSET [Concomitant]
     Indication: ANALGESIC THERAPY

REACTIONS (4)
  - BLINDNESS [None]
  - CATARACT [None]
  - CHOLELITHIASIS [None]
  - PAIN [None]
